FAERS Safety Report 9347419 (Version 1)
Quarter: 2013Q2

REPORT INFORMATION
  Report Type: Spontaneous
  Country: IT (occurrence: IT)
  Receive Date: 20130613
  Receipt Date: 20130613
  Transmission Date: 20140414
  Serious: Yes (Hospitalization)
  Sender: FDA-Public Use
  Company Number: IT-MYLANLABS-2013S1012406

PATIENT
  Age: 44 Year
  Sex: Female

DRUGS (2)
  1. DOXAZOSIN MESYLATE [Suspect]
     Indication: HYPERTENSION
     Route: 048
     Dates: start: 20130411, end: 20130426
  2. AMLODIPINE ACTAVIS [Suspect]
     Indication: HYPERTENSION
     Route: 048
     Dates: start: 20130411, end: 20130426

REACTIONS (2)
  - Angioedema [Recovered/Resolved]
  - Urticaria [Recovered/Resolved]
